FAERS Safety Report 16812646 (Version 5)
Quarter: 2019Q4

REPORT INFORMATION
  Report Type: Spontaneous
  Country: US (occurrence: US)
  Receive Date: 20190916
  Receipt Date: 20191107
  Transmission Date: 20200122
  Serious: Yes (Other)
  Sender: FDA-Public Use
  Company Number: US-ACTELION-A-NJ2019-195334

PATIENT
  Sex: Female
  Weight: 158.73 kg

DRUGS (3)
  1. ADEMPAS [Concomitant]
     Active Substance: RIOCIGUAT
  2. ELIQUIS [Concomitant]
     Active Substance: APIXABAN
  3. OPSUMIT [Suspect]
     Active Substance: MACITENTAN
     Indication: PULMONARY ARTERIAL HYPERTENSION
     Dosage: 10 MG, QD
     Route: 048
     Dates: start: 20190820

REACTIONS (12)
  - Nausea [Recovered/Resolved]
  - Nasal congestion [Unknown]
  - Dyspnoea [Recovering/Resolving]
  - Peripheral swelling [Recovered/Resolved]
  - Headache [Unknown]
  - Fluid retention [Recovering/Resolving]
  - Weight increased [Unknown]
  - Dizziness [Unknown]
  - Oedema [Unknown]
  - Hypotension [Recovered/Resolved]
  - Decreased appetite [Unknown]
  - Lymphoedema [Unknown]
